FAERS Safety Report 7549671-1 (Version None)
Quarter: 2011Q2

REPORT INFORMATION
  Report Type: 
  Country: None (occurrence: None)
  Receive Date: 20110615
  Receipt Date: 20100826
  Transmission Date: 20111010
  Serious: No
  Sender: FDA-Public Use
  Company Number: US-BRISTOL-MYERS SQUIBB COMPANY-15256761

PATIENT
  Age: 58 Year
  Sex: Female
  Weight: 101 kg

DRUGS (1)
  1. FOSINOPRIL SODIUM [Suspect]

REACTIONS (1)
  - DRUG INEFFECTIVE [None]
